FAERS Safety Report 10374661 (Version 1)
Quarter: 2014Q3

REPORT INFORMATION
  Report Type: Spontaneous
  Country: US (occurrence: None)
  Receive Date: 20140808
  Receipt Date: 20140808
  Transmission Date: 20150326
  Serious: No
  Sender: FDA-Public Use
  Company Number: None

PATIENT
  Age: 47 Year
  Sex: Male
  Weight: 113.4 kg

DRUGS (5)
  1. BLUE STAR [Suspect]
     Active Substance: CAMPHOR (NATURAL)
     Indication: ARTHROPOD BITE
     Dates: start: 20140407, end: 20140409
  2. BLUE STAR [Suspect]
     Active Substance: CAMPHOR (NATURAL)
     Indication: PRURITUS
     Dates: start: 20140407, end: 20140409
  3. AMLODINE BESYLATE [Concomitant]
  4. TRIAMCINOLONE ACETONIDE CREAM [Concomitant]
  5. WALGREENS IBUPROFEN FOR PAIN [Concomitant]

REACTIONS (3)
  - Urticaria [None]
  - Application site discolouration [None]
  - Application site pain [None]

NARRATIVE: CASE EVENT DATE: 20140409
